FAERS Safety Report 7070291-X (Version None)
Quarter: 2010Q4

REPORT INFORMATION
  Report Type: 
  Country: None (occurrence: None)
  Receive Date: 20101028
  Receipt Date: 20101011
  Transmission Date: 20110411
  Serious: No
  Sender: FDA-Public Use
  Company Number: US-WYE-H18157610

PATIENT
  Sex: Male

DRUGS (3)
  1. EFFEXOR [Suspect]
     Dosage: 75 MG, UNSPECIFIED FREQUENCY
  2. LORAZEPAM [Suspect]
  3. IBUPROFEN [Suspect]
     Dosage: UNSPECIFIED DOSE

REACTIONS (1)
  - MEMORY IMPAIRMENT [None]
